FAERS Safety Report 4483965-1 (Version None)
Quarter: 2004Q4

REPORT INFORMATION
  Report Type: 
  Country: None (occurrence: None)
  Receive Date: 20041025
  Receipt Date: 20041010
  Transmission Date: 20050328
  Serious: Yes (Other)
  Sender: FDA-Public Use
  Company Number: DE-JNJFOC-20040808373

PATIENT
  Sex: Female

DRUGS (2)
  1. DUROGESIC SMAT [Suspect]
     Indication: PAIN
     Route: 062
  2. NEUROCIL [Concomitant]

REACTIONS (2)
  - COMA [None]
  - SOMNOLENCE [None]
